FAERS Safety Report 18359183 (Version 1)
Quarter: 2020Q4

REPORT INFORMATION
  Report Type: Spontaneous
  Country: US (occurrence: US)
  Receive Date: 20201007
  Receipt Date: 20201007
  Transmission Date: 20210114
  Serious: No
  Sender: FDA-Public Use
  Company Number: None

PATIENT
  Age: 71 Year
  Sex: Female

DRUGS (10)
  1. MILADRENE [Concomitant]
     Dates: start: 20201006
  2. PROBIOTIC CAPSULE [Concomitant]
     Dates: start: 20201006
  3. LOSARTAN POT [Concomitant]
     Active Substance: LOSARTAN POTASSIUM
     Dates: start: 20201006
  4. REPATHA [Suspect]
     Active Substance: EVOLOCUMAB
     Indication: HYPERCHOLESTEROLAEMIA
     Dosage: ?          OTHER FREQUENCY:EVERY 2 WKS;?
     Route: 058
     Dates: start: 20180320
  5. BRILINTA [Concomitant]
     Active Substance: TICAGRELOR
     Dates: start: 20201006
  6. VITAMIN C [Concomitant]
     Active Substance: ASCORBIC ACID
     Dates: start: 20201006
  7. MAG OXIDE [Concomitant]
     Active Substance: MAGNESIUM OXIDE
     Dates: start: 20201006
  8. ASPIRIN. [Concomitant]
     Active Substance: ASPIRIN
     Dates: start: 20201006
  9. VITAMIN D3 [Concomitant]
     Active Substance: CHOLECALCIFEROL
     Dates: start: 20201006
  10. TUMS EX [Concomitant]
     Active Substance: CALCIUM CARBONATE
     Dates: start: 20201006

REACTIONS (1)
  - Stent placement [None]

NARRATIVE: CASE EVENT DATE: 20201002
